FAERS Safety Report 6242364-2 (Version None)
Quarter: 2009Q2

REPORT INFORMATION
  Report Type: 
  Country: None (occurrence: None)
  Receive Date: 20090622
  Receipt Date: 20090622
  Transmission Date: 20091009
  Serious: No
  Sender: FDA-Public Use
  Company Number: None

PATIENT
  Age: 56 Year
  Sex: Female
  Weight: 90.7194 kg

DRUGS (1)
  1. ZICAM NASAL B40118 - MY ATTORNEY HAS THE [Suspect]
     Indication: OROPHARYNGEAL PAIN
     Dosage: SPRAY NASAL
     Route: 045
     Dates: start: 20040708, end: 20040708

REACTIONS (2)
  - AGEUSIA [None]
  - ANOSMIA [None]
